FAERS Safety Report 24118109 (Version 1)
Quarter: 2024Q3

REPORT INFORMATION
  Report Type: Spontaneous
  Country: BE (occurrence: BE)
  Receive Date: 20240722
  Receipt Date: 20240722
  Transmission Date: 20241016
  Serious: Yes (Other)
  Sender: AMGEN
  Company Number: BE-AMGEN-BELSP2024141758

PATIENT
  Age: 67 Year
  Sex: Female

DRUGS (4)
  1. APREMILAST [Suspect]
     Active Substance: APREMILAST
     Indication: Pemphigus
     Dosage: 30 MILLIGRAM, BID
     Route: 048
  2. APREMILAST [Suspect]
     Active Substance: APREMILAST
     Indication: Off label use
     Dosage: 30 MILLIGRAM, BID
     Route: 048
  3. RITUXIMAB [Concomitant]
     Active Substance: RITUXIMAB
     Indication: Pemphigus
     Dosage: 1 GRAM (TWO WEEK INTERVALS)
     Route: 065
  4. PREDNISONE [Concomitant]
     Active Substance: PREDNISONE
     Indication: Pemphigus
     Dosage: 1 MILLIGRAM, QD
     Route: 065

REACTIONS (3)
  - Pemphigus [Recovered/Resolved]
  - Drug effective for unapproved indication [Unknown]
  - Off label use [Unknown]
